FAERS Safety Report 9498669 (Version 2)
Quarter: 2013Q3

REPORT INFORMATION
  Report Type: Spontaneous
  Country: US (occurrence: US)
  Receive Date: 20130904
  Receipt Date: 20130924
  Transmission Date: 20140515
  Serious: No
  Sender: FDA-Public Use
  Company Number: US-PFIZER INC-2013254982

PATIENT
  Age: 31 Year
  Sex: Female
  Weight: 63.9 kg

DRUGS (3)
  1. EFFEXOR XR [Suspect]
     Indication: ANXIETY
     Dosage: 225 MG, DAILY
  2. EFFEXOR XR [Suspect]
     Indication: DEPRESSION
  3. KLONOPIN [Concomitant]
     Dosage: 1 MG, 3X/DAY

REACTIONS (1)
  - Hypovitaminosis [Unknown]
